FAERS Safety Report 13932213 (Version 6)
Quarter: 2017Q4

REPORT INFORMATION
  Report Type: Spontaneous
  Country: US (occurrence: US)
  Receive Date: 20170904
  Receipt Date: 20171205
  Transmission Date: 20180320
  Serious: Yes (Other)
  Sender: FDA-Public Use
  Company Number: US-PFIZER INC-2017380800

PATIENT
  Age: 67 Year
  Sex: Female
  Weight: 71.66 kg

DRUGS (4)
  1. IBRANCE [Suspect]
     Active Substance: PALBOCICLIB
     Indication: BREAST CANCER METASTATIC
     Dosage: 125 MG, CYCLIC (DAYS 1-21 Q28 DAYS), (D 10 D 21 Q 28 D)
     Route: 048
     Dates: start: 20170816
  2. IBRANCE [Suspect]
     Active Substance: PALBOCICLIB
     Dosage: 125 MG, CYCLIC (DAYS 1-21 Q28 DAYS)
     Route: 048
     Dates: end: 201710
  3. IBRANCE [Suspect]
     Active Substance: PALBOCICLIB
     Dosage: 125 MG, CYCLIC [D 1-21 Q28 DAYS]
     Route: 048
     Dates: end: 201711
  4. IBRANCE [Suspect]
     Active Substance: PALBOCICLIB
     Dosage: 75 MG, UNK

REACTIONS (27)
  - Eye pruritus [Unknown]
  - Alopecia [Unknown]
  - Bipolar disorder [Unknown]
  - Chills [Unknown]
  - Poor quality sleep [Unknown]
  - Malaise [Unknown]
  - Fatigue [Unknown]
  - Irritability [Unknown]
  - Insomnia [Unknown]
  - Mastication disorder [Unknown]
  - Hot flush [Unknown]
  - Pruritus [Not Recovered/Not Resolved]
  - Mouth swelling [Unknown]
  - Night sweats [Unknown]
  - Confusional state [Unknown]
  - Gingival swelling [Unknown]
  - Memory impairment [Unknown]
  - Mucosal dryness [Unknown]
  - Drug hypersensitivity [Unknown]
  - Neoplasm progression [Unknown]
  - Mood altered [Unknown]
  - Burning sensation [Unknown]
  - Erythema [Unknown]
  - Vision blurred [Unknown]
  - Sinusitis [Unknown]
  - Dysgeusia [Unknown]
  - Scab [Unknown]

NARRATIVE: CASE EVENT DATE: 2017
